FAERS Safety Report 8605312-3 (Version None)
Quarter: 2012Q3

REPORT INFORMATION
  Report Type: 
  Country: None (occurrence: None)
  Receive Date: 20120807
  Receipt Date: 20120730
  Transmission Date: 20120928
  Serious: No
  Sender: FDA-Public Use
  Company Number: 2012-00141

PATIENT
  Age: 38 Year
  Sex: Male
  Weight: 113.3993 kg

DRUGS (2)
  1. ZICAM COLD REMEDY NASAL GEL [Suspect]
     Indication: NASAL CONGESTION
     Dosage: USED IN EACH NOSTRIL TWICE DAILY
     Dates: start: 20120628, end: 20120630
  2. UNKNOWN ANTIHYPERTENSIVE [Concomitant]

REACTIONS (1)
  - ANOSMIA [None]
